FAERS Safety Report 4522275-0 (Version None)
Quarter: 2004Q4

REPORT INFORMATION
  Report Type: 
  Country: None (occurrence: None)
  Receive Date: 20041207
  Receipt Date: 42001112
  Transmission Date: 20050328
  Serious: Yes (Hospitalization)
  Sender: FDA-Public Use
  Company Number: USA041184593

PATIENT
  Age: 29 Year
  Sex: Female

DRUGS (3)
  1. CYMBALTA [Suspect]
     Indication: DEPRESSION
     Dosage: 60 MG DAY
  2. LEXAPRO [Concomitant]
  3. ABILIFY [Concomitant]

REACTIONS (6)
  - AGITATION [None]
  - DRUG INEFFECTIVE [None]
  - IRRITABILITY [None]
  - NIGHTMARE [None]
  - SLEEP TALKING [None]
  - SUICIDAL IDEATION [None]
